FAERS Safety Report 17273743 (Version 1)
Quarter: 2020Q1

REPORT INFORMATION
  Report Type: Spontaneous
  Country: US (occurrence: US)
  Receive Date: 20200115
  Receipt Date: 20200115
  Transmission Date: 20200409
  Serious: No
  Sender: FDA-Public Use
  Company Number: US-PERRIGO-19US005977

PATIENT
  Age: 47 Year
  Sex: Female
  Weight: 61.68 kg

DRUGS (2)
  1. IBUPROFEN. [Suspect]
     Active Substance: IBUPROFEN
     Dosage: 800 MG ONCE, THEN 200 TO 400 MG 3 TIMES
     Route: 048
     Dates: start: 20190511, end: 20190511
  2. IBUPROFEN. [Suspect]
     Active Substance: IBUPROFEN
     Indication: PYREXIA
     Dosage: 400 MG, EVERY 3 HOURS
     Route: 048
     Dates: start: 20190510, end: 20190510

REACTIONS (11)
  - Chills [Recovered/Resolved]
  - Eyelid ptosis [Recovered/Resolved]
  - Inappropriate schedule of product administration [Recovered/Resolved]
  - Chest pain [Recovered/Resolved]
  - Syncope [Recovered/Resolved]
  - Dyspnoea [Recovered/Resolved]
  - Incorrect dose administered [Recovered/Resolved]
  - Abdominal pain upper [Recovered/Resolved]
  - Drug ineffective [Unknown]
  - Speech disorder [Recovered/Resolved]
  - Gait disturbance [Recovered/Resolved]

NARRATIVE: CASE EVENT DATE: 20190510
